FAERS Safety Report 20923181 (Version 1)
Quarter: 2022Q2

REPORT INFORMATION
  Report Type: Spontaneous
  Country: PT (occurrence: PT)
  Receive Date: 20220607
  Receipt Date: 20220607
  Transmission Date: 20220720
  Serious: Yes (Other)
  Sender: FDA-Public Use
  Company Number: PT-009507513-2104PRT004162

PATIENT
  Age: 44 Year
  Sex: Male

DRUGS (5)
  1. PEMBROLIZUMAB [Suspect]
     Active Substance: PEMBROLIZUMAB
     Indication: Non-small cell lung cancer metastatic
     Dosage: 200 MG INFUSIONS EVERY 3 WEEKS
  2. PEMBROLIZUMAB [Suspect]
     Active Substance: PEMBROLIZUMAB
     Dosage: INFUSIONS RESTARTED AFTER PREDNISOLONE HAD BEEN COMPLETELY TAPERED
  3. OMEPRAZOLE [Concomitant]
     Active Substance: OMEPRAZOLE
  4. DULOXETINE HYDROCHLORIDE [Concomitant]
     Active Substance: DULOXETINE HYDROCHLORIDE
  5. PREGABALIN [Concomitant]
     Active Substance: PREGABALIN

REACTIONS (2)
  - Immune-mediated gastritis [Recovered/Resolved]
  - Immune-mediated gastritis [Recovering/Resolving]
